FAERS Safety Report 7353006-7 (Version None)
Quarter: 2011Q1

REPORT INFORMATION
  Report Type: 
  Country: None (occurrence: None)
  Receive Date: 20110315
  Receipt Date: 20101119
  Transmission Date: 20110831
  Serious: Yes (Other)
  Sender: FDA-Public Use
  Company Number: A0897097A

PATIENT
  Age: 64 Year
  Sex: Female

DRUGS (1)
  1. AVANDAMET [Suspect]
     Indication: DIABETES MELLITUS
     Route: 048
     Dates: start: 20050105, end: 20070919

REACTIONS (4)
  - CARDIOVASCULAR DISORDER [None]
  - MYOCARDIAL INFARCTION [None]
  - DIZZINESS [None]
  - ARTERIOSCLEROSIS [None]
